FAERS Safety Report 13614345 (Version 1)
Quarter: 2017Q2

REPORT INFORMATION
  Report Type: Report from Study
  Country: DE (occurrence: DE)
  Receive Date: 20170606
  Receipt Date: 20170606
  Transmission Date: 20170830
  Serious: Yes (Hospitalization)
  Sender: FDA-Public Use
  Company Number: DE-ROCHE-1941556

PATIENT
  Age: 25 Year
  Sex: Female
  Weight: 56.9 kg

DRUGS (4)
  1. MYCOPHENOLATE MOFETIL. [Suspect]
     Active Substance: MYCOPHENOLATE MOFETIL
     Indication: RENAL TRANSPLANT
     Route: 065
     Dates: start: 20151019
  2. BELATACEPT [Concomitant]
     Active Substance: BELATACEPT
     Route: 065
     Dates: start: 20151105
  3. PROGRAF [Suspect]
     Active Substance: TACROLIMUS\TACROLIMUS ANHYDROUS
     Indication: RENAL TRANSPLANT
     Route: 065
     Dates: start: 20151019, end: 20151104
  4. PREDNISON [Concomitant]
     Active Substance: PREDNISONE
     Route: 065
     Dates: start: 20151022

REACTIONS (5)
  - Haemolytic uraemic syndrome [Recovered/Resolved]
  - Toxicity to various agents [Recovered/Resolved]
  - Haematoma [Recovered/Resolved]
  - Kidney transplant rejection [Recovered/Resolved]
  - Kidney transplant rejection [Recovered/Resolved]

NARRATIVE: CASE EVENT DATE: 20151026
